FAERS Safety Report 7109854-1 (Version None)
Quarter: 2010Q4

REPORT INFORMATION
  Report Type: 
  Country: None (occurrence: None)
  Receive Date: 20101118
  Receipt Date: 20101108
  Transmission Date: 20110411
  Serious: Yes (Hospitalization, Other)
  Sender: FDA-Public Use
  Company Number: DE-JNJFOC-20101103593

PATIENT
  Age: 67 Year
  Sex: Female
  Weight: 55 kg

DRUGS (6)
  1. DURAGESIC-100 [Suspect]
     Indication: ILL-DEFINED DISORDER
     Route: 062
  2. DURAGESIC-100 [Suspect]
     Route: 062
  3. SUNITINIB MALATE [Interacting]
     Indication: METASTATIC RENAL CELL CARCINOMA
     Dosage: 4 WEEKS ON 2 WEEKS OFF
     Route: 048
  4. AROMASIN [Concomitant]
     Route: 065
  5. ALIZAPRIDE [Concomitant]
     Route: 065
  6. ZOLEDRONIC ACID [Concomitant]
     Route: 065

REACTIONS (2)
  - DRUG INTERACTION [None]
  - SOMNOLENCE [None]
